FAERS Safety Report 10213912 (Version 1)
Quarter: 2014Q2

REPORT INFORMATION
  Report Type: Spontaneous
  Country: US (occurrence: None)
  Receive Date: 20140529
  Receipt Date: 20140529
  Transmission Date: 20141212
  Serious: Yes (Hospitalization)
  Sender: FDA-Public Use
  Company Number: 153140

PATIENT
  Age: 69 Year
  Sex: Male

DRUGS (1)
  1. ADRIAMYCIN (DOXORUBICIN) INJ. USP 10MG/5ML - BEDFORD LABS, INC. [Suspect]
     Indication: HEPATOCELLULAR CARCINOMA

REACTIONS (12)
  - Pancreatitis necrotising [None]
  - Abscess [None]
  - Haemoglobin decreased [None]
  - Platelet count decreased [None]
  - Hepatic artery occlusion [None]
  - Nausea [None]
  - Abdominal pain [None]
  - Decreased appetite [None]
  - Post embolisation syndrome [None]
  - Pancreas infection [None]
  - Klebsiella test positive [None]
  - Citrobacter test positive [None]
